FAERS Safety Report 7081210-4 (Version None)
Quarter: 2010Q4

REPORT INFORMATION
  Report Type: 
  Country: None (occurrence: None)
  Receive Date: 20101025
  Receipt Date: 20101007
  Transmission Date: 20110411
  Serious: Yes (Other)
  Sender: FDA-Public Use
  Company Number: 1000015919

PATIENT
  Age: 56 Year
  Sex: Male
  Weight: 104.3 kg

DRUGS (7)
  1. ESCITALOPRAM [Suspect]
     Indication: DEPRESSION
     Dosage: 10 MG (10 MG, 1 IN 1 D), ORAL
     Route: 048
     Dates: start: 20100217
  2. CLONAZEPAM [Suspect]
     Indication: SEDATION
     Dosage: 1 MG (1 MG,1 IN 1 D),ORAL
     Route: 048
  3. SEROQUEL [Suspect]
     Indication: MANIA
     Dosage: 200 MG (200 MG, 1 IN 1 D), ORAL
     Route: 048
  4. WELLBUTRIN XL [Suspect]
     Indication: DEPRESSION
     Dosage: 300 MG (300 MG, 1 IN 1 D), ORAL
     Route: 048
  5. ECHINACEA (ECHINACEA PURPURA) (ECHINACEA PURPURA) [Concomitant]
  6. HORSE CHESTNUT EXTRACT (AESCULUS HIPPOCASTANUM EXTRACT) (AESCULUS HIPP [Concomitant]
  7. MILK THISTLE (SILYBUM MARIANUM) (SILYBUM MARIANUM) [Concomitant]

REACTIONS (14)
  - CONSTIPATION [None]
  - DEPRESSION [None]
  - DIZZINESS [None]
  - DRY MOUTH [None]
  - ERECTION INCREASED [None]
  - FATIGUE [None]
  - INCREASED APPETITE [None]
  - MUSCULAR WEAKNESS [None]
  - NAUSEA [None]
  - SOMNOLENCE [None]
  - SUICIDAL IDEATION [None]
  - TINNITUS [None]
  - TREMOR [None]
  - WEIGHT INCREASED [None]
